FAERS Safety Report 7764922-6 (Version None)
Quarter: 2011Q3

REPORT INFORMATION
  Report Type: 
  Country: None (occurrence: None)
  Receive Date: 20110921
  Receipt Date: 20110912
  Transmission Date: 20111222
  Serious: Yes (Death)
  Sender: FDA-Public Use
  Company Number: JP-JNJFOC-20100600195

PATIENT
  Sex: Female
  Weight: 72 kg

DRUGS (11)
  1. PREDNISOLONE [Concomitant]
     Indication: RHEUMATOID ARTHRITIS
     Route: 048
  2. REMICADE [Suspect]
     Indication: RHEUMATOID ARTHRITIS
     Route: 042
     Dates: start: 20070507
  3. REMICADE [Suspect]
     Route: 042
     Dates: start: 20070326
  4. REMICADE [Suspect]
     Route: 042
     Dates: start: 20070903
  5. RHEUMATREX [Suspect]
     Indication: RHEUMATOID ARTHRITIS
     Route: 048
  6. REMICADE [Suspect]
     Route: 042
     Dates: start: 20070409
  7. REMICADE [Suspect]
     Route: 042
     Dates: start: 20071227
  8. REMICADE [Suspect]
     Route: 042
     Dates: start: 20080214
  9. REMICADE [Suspect]
     Route: 042
     Dates: start: 20070702
  10. REMICADE [Suspect]
     Route: 042
     Dates: start: 20080414
  11. REMICADE [Suspect]
     Route: 042
     Dates: start: 20071105

REACTIONS (1)
  - OVARIAN CANCER [None]
